FAERS Safety Report 11617418 (Version 4)
Quarter: 2016Q3

REPORT INFORMATION
  Report Type: Report from Study
  Country: US (occurrence: US)
  Receive Date: 20151009
  Receipt Date: 20160817
  Transmission Date: 20161109
  Serious: Yes (Hospitalization)
  Sender: FDA-Public Use
  Company Number: GXBR2015US002234

PATIENT
  Age: 29 Year
  Sex: Female

DRUGS (2)
  1. RIBAVIRIN. [Suspect]
     Active Substance: RIBAVIRIN
     Indication: PRODUCT USED FOR UNKNOWN INDICATION
     Dosage: FETAL DRUG EXPSOURE VIA FATHER
     Route: 050
  2. PRENATAL [Concomitant]
     Active Substance: VITAMINS
     Indication: VITAMIN SUPPLEMENTATION
     Dosage: 1 DF, QD
     Route: 065
     Dates: start: 20141210

REACTIONS (4)
  - Pre-eclampsia [Recovered/Resolved]
  - Induced labour [Unknown]
  - Premature delivery [Unknown]
  - Exposure via partner [Unknown]

NARRATIVE: CASE EVENT DATE: 20141115
